FAERS Safety Report 8917821 (Version 1)
Quarter: 2012Q4

REPORT INFORMATION
  Report Type: 
  Country: US (occurrence: US)
  Receive Date: 20121120
  Receipt Date: 20121120
  Transmission Date: 20130627
  Serious: No
  Sender: FDA-Public Use
  Company Number: US-ASTRAZENECA-2011SE29966

PATIENT
  Age: 26 Year
  Sex: Female

DRUGS (4)
  1. NEXIUM [Suspect]
     Route: 048
  2. METOPROLOL [Suspect]
     Route: 048
  3. MIDODRINE [Concomitant]
  4. HYOSCYAMINE [Concomitant]

REACTIONS (4)
  - Colitis ulcerative [Unknown]
  - Gastrooesophageal reflux disease [Unknown]
  - Malaise [Unknown]
  - Drug dose omission [Unknown]
